FAERS Safety Report 24448927 (Version 1)
Quarter: 2024Q4

REPORT INFORMATION
  Report Type: Report from Study
  Country: US (occurrence: US)
  Receive Date: 20241017
  Receipt Date: 20241017
  Transmission Date: 20250114
  Serious: Yes (Other)
  Sender: GILEAD
  Company Number: US-GILEAD-2024-0691032

PATIENT
  Sex: Male

DRUGS (3)
  1. AZTREONAM LYSINE [Suspect]
     Active Substance: AZTREONAM LYSINE
     Indication: Pseudomonas infection
     Dosage: 75 MG, 28 DAYS ON/28 DAYS OFF, QTY OF 84
     Route: 065
  2. AZTREONAM LYSINE [Suspect]
     Active Substance: AZTREONAM LYSINE
     Indication: Heterotaxia
  3. AZTREONAM LYSINE [Suspect]
     Active Substance: AZTREONAM LYSINE
     Indication: Respiratory tract malformation

REACTIONS (2)
  - Chronic kidney disease [Unknown]
  - Off label use [Unknown]
